FAERS Safety Report 25876689 (Version 2)
Quarter: 2025Q4

REPORT INFORMATION
  Report Type: Report from Study
  Country: BR (occurrence: BR)
  Receive Date: 20251003
  Receipt Date: 20251016
  Transmission Date: 20260118
  Serious: Yes (Other)
  Sender: CHIESI
  Company Number: BR-CHIESI-AEGR007460

PATIENT
  Age: 12 Year
  Sex: Male

DRUGS (8)
  1. METRELEPTIN [Suspect]
     Active Substance: METRELEPTIN
     Indication: Congenital generalised lipodystrophy
     Dosage: 0.5 MILLILITER, QD
     Route: 065
  2. METRELEPTIN [Suspect]
     Active Substance: METRELEPTIN
     Dosage: UNK
     Route: 065
     Dates: start: 202507
  3. METRELEPTIN [Suspect]
     Active Substance: METRELEPTIN
     Dosage: 0.5 MILLILITER, BID
     Route: 065
     Dates: start: 202509
  4. METFORMIN [Concomitant]
     Active Substance: METFORMIN HYDROCHLORIDE
     Indication: Type 1 diabetes mellitus
     Dosage: UNK, BID
  5. LIPIDIL [Concomitant]
     Active Substance: FENOFIBRATE
     Indication: Blood cholesterol
     Dosage: UNK, QD
     Dates: start: 2015
  6. ORLISTAT [Concomitant]
     Active Substance: ORLISTAT
     Indication: Hepatic steatosis
     Dosage: UNK, BID
     Dates: start: 2013
  7. ORLISTAT [Concomitant]
     Active Substance: ORLISTAT
     Indication: Blood triglycerides increased
  8. FLUOXETINE HYDROCHLORIDE [Concomitant]
     Active Substance: FLUOXETINE HYDROCHLORIDE
     Indication: Anxiety
     Dosage: UNK
     Dates: start: 20250514

REACTIONS (13)
  - Diabetes mellitus inadequate control [Unknown]
  - Product preparation issue [Unknown]
  - Product use issue [Unknown]
  - Product use issue [Unknown]
  - Abdominal distension [Unknown]
  - Bladder dilatation [Unknown]
  - Flatulence [Unknown]
  - Hepatic steatosis [Not Recovered/Not Resolved]
  - Weight increased [Unknown]
  - Diarrhoea [Unknown]
  - Treatment noncompliance [Unknown]
  - Wrong technique in product usage process [Not Recovered/Not Resolved]
  - Off label use [Not Recovered/Not Resolved]

NARRATIVE: CASE EVENT DATE: 20250901
